FAERS Safety Report 4434343-2 (Version None)
Quarter: 2004Q3

REPORT INFORMATION
  Report Type: 
  Country: None (occurrence: None)
  Receive Date: 20040826
  Receipt Date: 20030929
  Transmission Date: 20050211
  Serious: Yes (Other)
  Sender: FDA-Public Use
  Company Number: US-MERCK-0310USA00080

PATIENT
  Age: 60 Year
  Sex: Female
  Weight: 78 kg

DRUGS (17)
  1. ASPIRIN [Concomitant]
     Indication: MYOCARDIAL INFARCTION
     Route: 065
  2. LIPITOR [Concomitant]
     Route: 048
     Dates: end: 20020612
  3. CAPTOPRIL [Concomitant]
     Route: 048
     Dates: end: 20021113
  4. CAPTOPRIL [Concomitant]
     Route: 065
  5. BAYCOL [Concomitant]
     Indication: BLOOD CHOLESTEROL INCREASED
     Route: 048
     Dates: end: 20010815
  6. BAYCOL [Concomitant]
     Route: 048
  7. ESTROGENS (UNSPECIFIED) [Concomitant]
     Route: 065
  8. ALLEGRA [Concomitant]
     Indication: HYPERSENSITIVITY
     Route: 065
  9. HYDRODIURIL [Concomitant]
     Indication: HYPERTENSION
     Route: 065
  10. MOTRIN [Concomitant]
     Indication: PAIN
     Route: 065
  11. CLARITIN [Concomitant]
     Indication: HYPERSENSITIVITY
     Route: 065
  12. METOPROLOL [Concomitant]
     Route: 065
     Dates: end: 20020401
  13. METOPROLOL [Concomitant]
     Route: 065
  14. METOPROLOL [Concomitant]
     Route: 065
     Dates: start: 20020601
  15. ALEVE [Concomitant]
     Route: 065
  16. NITROQUICK [Concomitant]
     Indication: CHEST PAIN
     Route: 060
  17. VIOXX [Suspect]
     Indication: ARTHRITIS
     Route: 048
     Dates: start: 20010503, end: 20020101

REACTIONS (7)
  - BACK PAIN [None]
  - CARDIAC DISORDER [None]
  - EMOTIONAL DISTRESS [None]
  - HYPERTENSION [None]
  - MYALGIA [None]
  - MYOCARDIAL INFARCTION [None]
  - PAIN IN EXTREMITY [None]
